FAERS Safety Report 26121567 (Version 1)
Quarter: 2025Q4

REPORT INFORMATION
  Report Type: Report from Study
  Country: US (occurrence: US)
  Receive Date: 20251204
  Receipt Date: 20251204
  Transmission Date: 20260118
  Serious: Yes (Hospitalization, Other)
  Sender: GILEAD
  Company Number: US-GILEAD-2025-0739337

PATIENT
  Age: 62 Year
  Sex: Female

DRUGS (2)
  1. AZTREONAM LYSINE [Suspect]
     Active Substance: AZTREONAM LYSINE
     Indication: Pneumonia
     Dosage: 75 MG, TID
     Route: 055
     Dates: start: 202510
  2. AZTREONAM LYSINE [Suspect]
     Active Substance: AZTREONAM LYSINE
     Indication: Bronchiectasis

REACTIONS (3)
  - Pseudomonas infection [Recovering/Resolving]
  - Product use in unapproved indication [Not Recovered/Not Resolved]
  - Product storage error [Unknown]
